FAERS Safety Report 9284101 (Version 3)
Quarter: 2013Q2

REPORT INFORMATION
  Report Type: Spontaneous
  Country: DE (occurrence: DE)
  Receive Date: 20130510
  Receipt Date: 20130520
  Transmission Date: 20140414
  Serious: Yes (Other)
  Sender: FDA-Public Use
  Company Number: DE-PFIZER INC-2013144145

PATIENT
  Age: 68 Year
  Sex: Male

DRUGS (2)
  1. DELIX [Suspect]
     Dosage: 10 MG, DAILY
     Route: 065
  2. METFORMIN [Concomitant]
     Indication: TYPE 2 DIABETES MELLITUS
     Dosage: UNK

REACTIONS (2)
  - Pulmonary congestion [Unknown]
  - Cough [Unknown]
